FAERS Safety Report 7537698-5 (Version None)
Quarter: 2011Q2

REPORT INFORMATION
  Report Type: 
  Country: None (occurrence: None)
  Receive Date: 20110609
  Receipt Date: 20070905
  Transmission Date: 20111010
  Serious: Yes (Other)
  Sender: FDA-Public Use
  Company Number: PHNR2006AU01434

PATIENT
  Sex: Male

DRUGS (6)
  1. CLOZAPINE [Suspect]
     Dosage: 175 MG, DAILY
     Route: 048
     Dates: start: 20061129
  2. INTERFERON [Suspect]
     Indication: HEPATITIS C
  3. CLOZAPINE [Suspect]
     Dosage: 25 - 300 MG
     Route: 048
     Dates: start: 20000728, end: 20061017
  4. CLOZAPINE [Suspect]
     Dosage: 125 MG, DAILY
     Route: 048
     Dates: start: 20061124, end: 20061129
  5. CLOZAPINE [Suspect]
     Dosage: 125 MG, DILY
     Route: 048
     Dates: start: 20061018, end: 20061115
  6. CLOZAPINE [Suspect]
     Dosage: 0 - 150 MG/DAY
     Dates: start: 20061116, end: 20061121

REACTIONS (3)
  - WHITE BLOOD CELL COUNT DECREASED [None]
  - NEUTROPENIA [None]
  - HEPATITIS C [None]
